FAERS Safety Report 15831667 (Version 1)
Quarter: 2019Q1

REPORT INFORMATION
  Report Type: Spontaneous
  Country: US (occurrence: US)
  Receive Date: 20190116
  Receipt Date: 20190116
  Transmission Date: 20190417
  Serious: No
  Sender: FDA-Public Use
  Company Number: US-JNJFOC-20190102334

PATIENT
  Sex: Female
  Weight: 90.72 kg

DRUGS (2)
  1. ORTHO-NOVUM 777 [Suspect]
     Active Substance: ETHINYL ESTRADIOL\NORETHINDRONE
     Indication: ENDOMETRIOSIS
     Route: 048
  2. ORTHO-NOVUM 777 [Suspect]
     Active Substance: ETHINYL ESTRADIOL\NORETHINDRONE
     Indication: ENDOMETRIOSIS
     Route: 048

REACTIONS (4)
  - Treatment noncompliance [Unknown]
  - Ovarian cyst [Unknown]
  - Product use in unapproved indication [Unknown]
  - Off label use [Unknown]
